FAERS Safety Report 14061814 (Version 1)
Quarter: 2017Q4

REPORT INFORMATION
  Report Type: Spontaneous
  Country: US (occurrence: US)
  Receive Date: 20171009
  Receipt Date: 20171009
  Transmission Date: 20180321
  Serious: Yes (Other)
  Sender: FDA-Public Use
  Company Number: US-APOTEX-2017AP019415

PATIENT
  Age: 52 Year
  Sex: Male

DRUGS (23)
  1. RISPERIDONE. [Suspect]
     Active Substance: RISPERIDONE
     Indication: HALLUCINATION, AUDITORY
  2. PAROXETINE HYDROCHLORIDE. [Suspect]
     Active Substance: PAROXETINE HYDROCHLORIDE
     Indication: HALLUCINATION, AUDITORY
     Route: 065
  3. DONEPEZIL HYDROCHLORIDE TABLETS USP [Suspect]
     Active Substance: DONEPEZIL HYDROCHLORIDE
     Indication: HALLUCINATION, AUDITORY
  4. CLONIDINE TRANSDERMAL SYSTEM [Suspect]
     Active Substance: CLONIDINE
     Indication: MAJOR DEPRESSION
     Dosage: 0.2 MG, BID
     Route: 065
  5. LORAZEPAM. [Suspect]
     Active Substance: LORAZEPAM
     Indication: HALLUCINATION, AUDITORY
     Route: 065
  6. QUETIAPINE FUMARATE. [Suspect]
     Active Substance: QUETIAPINE FUMARATE
     Indication: HALLUCINATION, AUDITORY
  7. TRIFLUOPERAZINE [Suspect]
     Active Substance: TRIFLUOPERAZINE\TRIFLUOPERAZINE HYDROCHLORIDE
     Indication: HALLUCINATION, AUDITORY
  8. CARBAMAZEPINE. [Suspect]
     Active Substance: CARBAMAZEPINE
     Indication: HALLUCINATION, AUDITORY
     Dosage: 800 MG, Q.H.S.
     Route: 065
  9. CLONIDINE TRANSDERMAL SYSTEM [Suspect]
     Active Substance: CLONIDINE
     Indication: HALLUCINATION, AUDITORY
  10. VENLAFAXINE [Suspect]
     Active Substance: VENLAFAXINE HYDROCHLORIDE
     Indication: HALLUCINATION, AUDITORY
     Dosage: 75 MG, TID
     Route: 065
  11. QUETIAPINE FUMARATE. [Suspect]
     Active Substance: QUETIAPINE FUMARATE
     Indication: MAJOR DEPRESSION
     Dosage: 150 MG, AT BEDTIME
     Route: 065
  12. BUSPIPRONE HYDROCHLORIDE TABLETS USP [Suspect]
     Active Substance: BUSPIRONE HYDROCHLORIDE
     Indication: MAJOR DEPRESSION
  13. CITALOPRAM [Suspect]
     Active Substance: CITALOPRAM HYDROBROMIDE
     Indication: HALLUCINATION, AUDITORY
  14. MIRTAZAPINE. [Suspect]
     Active Substance: MIRTAZAPINE
     Indication: HALLUCINATION, AUDITORY
  15. BUSPIPRONE HYDROCHLORIDE TABLETS USP [Suspect]
     Active Substance: BUSPIRONE HYDROCHLORIDE
     Indication: HALLUCINATION, AUDITORY
     Dosage: 30 MG, BID
     Route: 065
  16. CARBAMAZEPINE. [Suspect]
     Active Substance: CARBAMAZEPINE
     Dosage: 600 MG, Q.AM
     Route: 065
  17. TRIFLUOPERAZINE [Suspect]
     Active Substance: TRIFLUOPERAZINE\TRIFLUOPERAZINE HYDROCHLORIDE
     Indication: MAJOR DEPRESSION
     Dosage: 5 MG, BID
     Route: 065
  18. CITALOPRAM [Suspect]
     Active Substance: CITALOPRAM HYDROBROMIDE
     Indication: MAJOR DEPRESSION
     Dosage: 40 MG, UNK
     Route: 065
  19. DONEPEZIL HYDROCHLORIDE TABLETS USP [Suspect]
     Active Substance: DONEPEZIL HYDROCHLORIDE
     Indication: MAJOR DEPRESSION
     Dosage: 10 MG, Q.H.S.
     Route: 065
  20. VENLAFAXINE [Suspect]
     Active Substance: VENLAFAXINE HYDROCHLORIDE
     Indication: HALLUCINATION, AUDITORY
  21. GABAPENTIN. [Suspect]
     Active Substance: GABAPENTIN
     Indication: HALLUCINATION, AUDITORY
     Route: 065
  22. MIRTAZAPINE. [Suspect]
     Active Substance: MIRTAZAPINE
     Indication: MAJOR DEPRESSION
     Dosage: 15 MG, Q.H.S.
     Route: 065
  23. RISPERIDONE. [Suspect]
     Active Substance: RISPERIDONE
     Indication: MAJOR DEPRESSION
     Dosage: 2 MG, AT BEDTIME
     Route: 065

REACTIONS (2)
  - Treatment noncompliance [Unknown]
  - Drug ineffective [Unknown]
